FAERS Safety Report 17836501 (Version 1)
Quarter: 2020Q2

REPORT INFORMATION
  Report Type: Spontaneous
  Country: CN (occurrence: CN)
  Receive Date: 20200528
  Receipt Date: 20200528
  Transmission Date: 20200714
  Serious: Yes (Other)
  Sender: FDA-Public Use
  Company Number: CN-VALIDUS PHARMACEUTICALS LLC-CN-2020VAL000429

PATIENT

DRUGS (6)
  1. LANTHANUM CARBONATE. [Concomitant]
     Active Substance: LANTHANUM CARBONATE
     Indication: HYPERPARATHYROIDISM SECONDARY
     Dosage: UNK
  2. ROCALTROL [Suspect]
     Active Substance: CALCITRIOL
     Dosage: 2 ?G, 2 IN 1 WK
     Route: 048
  3. CINACALCET. [Concomitant]
     Active Substance: CINACALCET
     Indication: HYPERPARATHYROIDISM SECONDARY
     Dosage: UNK
  4. SEVELAMER [Concomitant]
     Active Substance: SEVELAMER
     Indication: HYPERPARATHYROIDISM SECONDARY
     Dosage: UNK
  5. ROCALTROL [Suspect]
     Active Substance: CALCITRIOL
     Indication: HYPERPARATHYROIDISM SECONDARY
     Dosage: 0.25 ?G, QD, 1 IN 1 D
     Route: 065
  6. CALCIUM CARBONATE. [Concomitant]
     Active Substance: CALCIUM CARBONATE
     Indication: PRODUCT USED FOR UNKNOWN INDICATION
     Dosage: 0.75 , TID 3 IN 1 D

REACTIONS (5)
  - Mitral valve calcification [Unknown]
  - Intentional product use issue [Unknown]
  - Off label use [Unknown]
  - Parathyroid tumour benign [Unknown]
  - Arteriosclerosis coronary artery [Unknown]
